FAERS Safety Report 19554135 (Version 1)
Quarter: 2021Q3

REPORT INFORMATION
  Report Type: Spontaneous
  Country: US (occurrence: US)
  Receive Date: 20210715
  Receipt Date: 20210715
  Transmission Date: 20211014
  Serious: No
  Sender: FDA-Public Use
  Company Number: US-TEVA-2021-US-1931438

PATIENT
  Age: 71 Year
  Sex: Male
  Weight: 104.33 kg

DRUGS (9)
  1. LIPITOR [Concomitant]
     Active Substance: ATORVASTATIN CALCIUM
  2. INDERAL [Concomitant]
     Active Substance: PROPRANOLOL HYDROCHLORIDE
  3. SANCTURA [Concomitant]
     Active Substance: TROSPIUM CHLORIDE
  4. CELEBREX [Concomitant]
     Active Substance: CELECOXIB
     Dosage: AS NEEDED
  5. PROSCAR [Concomitant]
     Active Substance: FINASTERIDE
  6. TRAZODONE [Concomitant]
     Active Substance: TRAZODONE HYDROCHLORIDE
     Dosage: NIGHTLY
  7. FLUOXETINE [Concomitant]
     Active Substance: FLUOXETINE HYDROCHLORIDE
  8. AUSTEDO [Suspect]
     Active Substance: DEUTETRABENAZINE
     Indication: TARDIVE DYSKINESIA
     Dosage: 36 MILLIGRAM DAILY;
     Route: 065
     Dates: start: 20200909
  9. HYDROCHLOROTHIAZIDE. [Concomitant]
     Active Substance: HYDROCHLOROTHIAZIDE

REACTIONS (2)
  - Depressed mood [Unknown]
  - Weight increased [Unknown]

NARRATIVE: CASE EVENT DATE: 202103
